FAERS Safety Report 17969452 (Version 1)
Quarter: 2020Q3

REPORT INFORMATION
  Report Type: Spontaneous
  Country: CN (occurrence: CN)
  Receive Date: 20200701
  Receipt Date: 20200701
  Transmission Date: 20201103
  Serious: Yes (Hospitalization, Other)
  Sender: FDA-Public Use
  Company Number: CN-PFIZER INC-2020250587

PATIENT
  Age: 71 Year
  Sex: Male
  Weight: 65 kg

DRUGS (1)
  1. LYRICA [Suspect]
     Active Substance: PREGABALIN
     Indication: HERPES ZOSTER
     Dosage: 75 MG, 2X/DAY
     Route: 048
     Dates: start: 20200525, end: 20200615

REACTIONS (5)
  - Generalised oedema [Recovering/Resolving]
  - Angioedema [Recovering/Resolving]
  - Chronic obstructive pulmonary disease [Recovering/Resolving]
  - Cardiovascular disorder [Recovering/Resolving]
  - Nephropathy [Recovering/Resolving]

NARRATIVE: CASE EVENT DATE: 2020
